FAERS Safety Report 24727090 (Version 1)
Quarter: 2024Q4

REPORT INFORMATION
  Report Type: Spontaneous
  Country: GB (occurrence: GB)
  Receive Date: 20241212
  Receipt Date: 20241212
  Transmission Date: 20250115
  Serious: Yes (Other)
  Sender: PFIZER
  Company Number: None

PATIENT
  Age: 67 Year
  Sex: Female
  Weight: 72 kg

DRUGS (3)
  1. FRAGMIN [Suspect]
     Active Substance: DALTEPARIN SODIUM
     Indication: Hip arthroplasty
     Dosage: 5000 IU/0.2ML INJECTION AT NIGHT
     Dates: start: 20241120, end: 20241206
  2. ACETAMINOPHEN [Concomitant]
     Active Substance: ACETAMINOPHEN
     Indication: Hip arthroplasty
     Dosage: UNK
     Dates: start: 20241120, end: 20241209
  3. NEFOPAM [Concomitant]
     Active Substance: NEFOPAM
     Indication: Hip arthroplasty
     Dosage: UNK
     Dates: start: 20241120, end: 20241125

REACTIONS (5)
  - Nausea [Recovered/Resolved]
  - Myalgia [Recovered/Resolved]
  - Muscular weakness [Recovered/Resolved]
  - Chest pain [Recovered/Resolved]
  - Chills [Recovered/Resolved]

NARRATIVE: CASE EVENT DATE: 20241122
